FAERS Safety Report 8224964 (Version 8)
Quarter: 2015Q2

REPORT INFORMATION
  Report Type: Other
  Country: US (occurrence: US)
  Receive Date: 20111103
  Receipt Date: 20150402
  Transmission Date: 20150821
  Serious: Yes (Other)
  Sender: FDA-Public Use
  Company Number: US-ENDO PHARMACEUTICALS INC.-PREV20110036

PATIENT
  Age: 32 Year
  Sex: Female

DRUGS (2)
  1. PREVIFEM [Suspect]
     Active Substance: ETHINYL ESTRADIOL\NORGESTIMATE
     Indication: CONTRACEPTION
     Route: 048
  2. TRI-PREVIFEM TABLETS [Suspect]
     Active Substance: ETHINYL ESTRADIOL\NORGESTIMATE
     Indication: CONTRACEPTION
     Route: 048

REACTIONS (9)
  - Injury [Unknown]
  - Drug ineffective [Unknown]
  - Muscle spasms [Recovering/Resolving]
  - Pregnancy on oral contraceptive [Unknown]
  - Live birth [Recovered/Resolved]
  - Abortion threatened [Recovered/Resolved]
  - Joint dislocation [Recovering/Resolving]
  - Back pain [Recovering/Resolving]
  - Product quality issue [Unknown]

NARRATIVE: CASE EVENT DATE: 2011
